FAERS Safety Report 5721472-6 (Version None)
Quarter: 2008Q2

REPORT INFORMATION
  Report Type: 
  Country: None (occurrence: None)
  Receive Date: 20080429
  Receipt Date: 20080418
  Transmission Date: 20081010
  Serious: Yes (Other)
  Sender: FDA-Public Use
  Company Number: GB-GENENTECH-259641

PATIENT
  Age: 40 Year
  Sex: Male

DRUGS (1)
  1. NUTROPIN [Suspect]
     Indication: GROWTH HORMONE DEFICIENCY
     Dosage: UNK, UNKNOWN
     Route: 065

REACTIONS (1)
  - BRAIN MASS [None]
